FAERS Safety Report 4322238-4 (Version None)
Quarter: 2004Q1

REPORT INFORMATION
  Report Type: 
  Country: None (occurrence: None)
  Receive Date: 20040323
  Receipt Date: 20040309
  Transmission Date: 20041129
  Serious: Yes (Death)
  Sender: FDA-Public Use
  Company Number: 2004S1000692

PATIENT
  Age: 52 Year
  Sex: Female

DRUGS (2)
  1. CLOZAPINE [Suspect]
     Dosage: 200MG Q AM + 300MG Q HS, ORAL
     Route: 048
     Dates: start: 20030731, end: 20030821
  2. CLOZAPINE [Suspect]
     Dosage: 200MG Q AM + 300MG Q HS, ORAL
     Route: 048
     Dates: start: 20040105, end: 20040229

REACTIONS (1)
  - LUNG CANCER METASTATIC [None]
